FAERS Safety Report 8959975 (Version 1)
Quarter: 2012Q4

REPORT INFORMATION
  Report Type: Report from Study
  Country: CA (occurrence: CA)
  Receive Date: 20121212
  Receipt Date: 20121212
  Transmission Date: 20130627
  Serious: Yes (Other)
  Sender: FDA-Public Use
  Company Number: CA-JNJFOC-20121200210

PATIENT
  Age: 55 Year
  Sex: Male
  Weight: 71.5 kg

DRUGS (10)
  1. REMICADE [Suspect]
     Indication: COLITIS ULCERATIVE
     Route: 042
     Dates: start: 20120710
  2. REMICADE [Suspect]
     Indication: COLITIS ULCERATIVE
     Route: 042
     Dates: start: 2012, end: 20121018
  3. REMICADE [Suspect]
     Indication: COLITIS ULCERATIVE
     Dosage: increased at 2-6 weeks
     Route: 042
     Dates: start: 2012, end: 2012
  4. IMURAN [Concomitant]
     Route: 065
  5. SALOFALK [Concomitant]
     Route: 065
  6. VITAMIN D [Concomitant]
     Route: 065
  7. CALCIUM [Concomitant]
     Route: 065
  8. ATIVAN [Concomitant]
     Route: 065
  9. NYTOL [Concomitant]
     Dosage: as needed
     Route: 065
  10. PREDNISONE [Concomitant]
     Dosage: decreasing doses started at 50 mg/day
     Route: 048

REACTIONS (2)
  - Intestinal resection [Unknown]
  - Drug ineffective [Unknown]
